FAERS Safety Report 24746459 (Version 2)
Quarter: 2024Q4

REPORT INFORMATION
  Report Type: Report from Study
  Country: MX (occurrence: MX)
  Receive Date: 20241218
  Receipt Date: 20241224
  Transmission Date: 20250114
  Serious: Yes (Other)
  Sender: BIOVITRUM
  Company Number: MX-AstraZeneca-CH-00764703A

PATIENT
  Age: 28 Day
  Sex: Male
  Weight: 6.18 kg

DRUGS (9)
  1. PALIVIZUMAB [Suspect]
     Active Substance: PALIVIZUMAB
     Indication: Antiviral prophylaxis
     Dosage: 1ST DOSE?MONTHLY
     Route: 030
     Dates: start: 20240816, end: 20240816
  2. PALIVIZUMAB [Suspect]
     Active Substance: PALIVIZUMAB
     Dosage: 2ND DOSE?50 MG, MONTHLY
     Route: 030
     Dates: start: 20240918, end: 20240918
  3. PALIVIZUMAB [Suspect]
     Active Substance: PALIVIZUMAB
     Dosage: 3RD DOSE?81 MG, MONTHLY
     Route: 030
     Dates: start: 20241025, end: 20241025
  4. PALIVIZUMAB [Suspect]
     Active Substance: PALIVIZUMAB
     Dosage: 4TH DOSE?0.9 ML, MONTHLY
     Route: 030
     Dates: start: 20241206, end: 20241206
  5. LORATADINE [Concomitant]
     Active Substance: LORATADINE
     Indication: Wheezing
     Dosage: 3 MILLILITER, Q12H
     Route: 065
  6. BETAMETHASONE [Concomitant]
     Active Substance: BETAMETHASONE
     Indication: Wheezing
     Dosage: 3 MILLILITER, Q12H
     Route: 065
  7. MUCOVIBROL [Concomitant]
     Indication: Productive cough
     Dosage: 13 DROP, Q12H
     Route: 065
  8. ACETYLCYSTEINE [Concomitant]
     Active Substance: ACETYLCYSTEINE
     Indication: Product used for unknown indication
     Route: 065
  9. DIMEGAN [Concomitant]
     Indication: Influenza
     Dosage: UNK
     Route: 065

REACTIONS (17)
  - Crying [Recovered/Resolved]
  - Pain [Recovered/Resolved]
  - Anaemia [Recovered/Resolved]
  - Fatigue [Recovered/Resolved]
  - Restlessness [Not Recovered/Not Resolved]
  - Cough [Not Recovered/Not Resolved]
  - Secretion discharge [Not Recovered/Not Resolved]
  - Productive cough [Not Recovered/Not Resolved]
  - Influenza [Not Recovered/Not Resolved]
  - Sneezing [Not Recovered/Not Resolved]
  - Sleep disorder [Not Recovered/Not Resolved]
  - Bronchitis [Not Recovered/Not Resolved]
  - Wheezing [Not Recovered/Not Resolved]
  - Secretion discharge [Recovered/Resolved]
  - Influenza [Recovered/Resolved]
  - Influenza [Recovered/Resolved]
  - Secretion discharge [Recovered/Resolved]

NARRATIVE: CASE EVENT DATE: 20240818
